FAERS Safety Report 8369021-0 (Version None)
Quarter: 2012Q2

REPORT INFORMATION
  Report Type: 
  Country: None (occurrence: None)
  Receive Date: 20120518
  Receipt Date: 20120515
  Transmission Date: 20120825
  Serious: No
  Sender: FDA-Public Use
  Company Number: US-PFIZER INC-2012074022

PATIENT
  Sex: Female
  Weight: 97.506 kg

DRUGS (5)
  1. PERCOCET [Concomitant]
     Dosage: UNK, AS NEEDED
  2. LEVOTHROID [Concomitant]
     Dosage: UNK, 1X/DAY
  3. ZOLOFT [Concomitant]
     Dosage: UNK, 1X/DAY
  4. LYRICA [Suspect]
     Indication: NERVE INJURY
     Dosage: 150 MG, 2X/DAY
     Route: 048
  5. LYRICA [Suspect]
     Indication: PAIN
     Dosage: 300 (UNK), 2X/DAY
     Route: 048
     Dates: start: 20070101

REACTIONS (2)
  - DYSPHONIA [None]
  - LARYNGITIS [None]
